FAERS Safety Report 11983881 (Version 2)
Quarter: 2016Q1

REPORT INFORMATION
  Report Type: Spontaneous
  Country: JP (occurrence: JP)
  Receive Date: 20160201
  Receipt Date: 20160225
  Transmission Date: 20160526
  Serious: Yes (Death, Other)
  Sender: FDA-Public Use
  Company Number: JP-BAYER-2016-012149

PATIENT
  Age: 46 Year
  Sex: Male

DRUGS (3)
  1. ACETYLSALICYLIC ACID({=100 MG) [Suspect]
     Active Substance: ASPIRIN
     Indication: THROMBOSIS PROPHYLAXIS
     Dosage: 100 MG, QD
     Route: 048
     Dates: start: 20111003, end: 20111025
  2. WARFARIN [Interacting]
     Active Substance: WARFARIN
     Indication: THROMBOSIS PROPHYLAXIS
     Dosage: 2 TO 6 MG, QD
     Route: 048
  3. HEPARIN [Interacting]
     Active Substance: HEPARIN SODIUM
     Indication: THROMBOSIS PROPHYLAXIS
     Dosage: 10000 TO 15000 IU, QD
     Route: 042

REACTIONS (5)
  - Blood pressure decreased [Recovered/Resolved]
  - Mediastinitis [Fatal]
  - Melaena [Recovered/Resolved]
  - Sepsis [Fatal]
  - Labelled drug-drug interaction medication error [None]

NARRATIVE: CASE EVENT DATE: 20111205
